FAERS Safety Report 10429547 (Version 1)
Quarter: 2014Q3

REPORT INFORMATION
  Report Type: Spontaneous
  Country: US (occurrence: None)
  Receive Date: 20140902
  Receipt Date: 20140902
  Transmission Date: 20150326
  Serious: Yes (Hospitalization, Disabling)
  Sender: FDA-Public Use
  Company Number: None

PATIENT
  Age: 43 Year
  Sex: Male
  Weight: 80.29 kg

DRUGS (4)
  1. REMICADE [Suspect]
     Active Substance: INFLIXIMAB
     Indication: PSORIASIS
     Dates: start: 20140116, end: 20140612
  2. METHOTREXATE [Suspect]
     Active Substance: METHOTREXATE
     Indication: PSORIATIC ARTHROPATHY
     Route: 048
     Dates: start: 20130930, end: 20140603
  3. REMICADE [Suspect]
     Active Substance: INFLIXIMAB
     Indication: PSORIATIC ARTHROPATHY
     Dates: start: 20140116, end: 20140612
  4. METHOTREXATE [Suspect]
     Active Substance: METHOTREXATE
     Indication: PSORIASIS
     Route: 048
     Dates: start: 20130930, end: 20140603

REACTIONS (15)
  - Mental status changes [None]
  - Jaundice [None]
  - Oropharyngeal pain [None]
  - Vomiting [None]
  - Constipation [None]
  - Foaming at mouth [None]
  - Alcohol withdrawal syndrome [None]
  - Liver injury [None]
  - Malaise [None]
  - Abdominal pain [None]
  - Chest pain [None]
  - Visual impairment [None]
  - Gastrointestinal inflammation [None]
  - Fatigue [None]
  - Musculoskeletal pain [None]

NARRATIVE: CASE EVENT DATE: 20140804
